FAERS Safety Report 24831458 (Version 1)
Quarter: 2025Q1

REPORT INFORMATION
  Report Type: Spontaneous
  Country: US (occurrence: None)
  Receive Date: 20250110
  Receipt Date: 20250110
  Transmission Date: 20250409
  Serious: No
  Sender: FDA-CTU
  Company Number: None

PATIENT

DRUGS (1)
  1. TEMOZOLOMIDE [Suspect]
     Active Substance: TEMOZOLOMIDE

REACTIONS (5)
  - Diarrhoea [None]
  - Dehydration [None]
  - Atrial fibrillation [None]
  - White blood cell count abnormal [None]
  - Aphasia [None]
